FAERS Safety Report 17468898 (Version 2)
Quarter: 2020Q2

REPORT INFORMATION
  Report Type: Spontaneous
  Country: US (occurrence: US)
  Receive Date: 20200227
  Receipt Date: 20200402
  Transmission Date: 20200713
  Serious: Yes (Death, Hospitalization, Other)
  Sender: FDA-Public Use
  Company Number: US-PFIZER INC-2020087497

PATIENT
  Age: 75 Year
  Sex: Male
  Weight: 96.15 kg

DRUGS (2)
  1. VYNDAQEL [Suspect]
     Active Substance: TAFAMIDIS MEGLUMINE
     Indication: HYPERTROPHIC CARDIOMYOPATHY
     Dosage: 4 MG, 1X/DAY
  2. VYNDAQEL [Suspect]
     Active Substance: TAFAMIDIS MEGLUMINE
     Dosage: 20 MG, 1X/DAY
     Dates: start: 2019, end: 202002

REACTIONS (5)
  - Gastrointestinal haemorrhage [Unknown]
  - Cardiac arrest [Unknown]
  - Hypovolaemic shock [Unknown]
  - Death [Fatal]
  - Internal haemorrhage [Not Recovered/Not Resolved]

NARRATIVE: CASE EVENT DATE: 20200215
